FAERS Safety Report 10872841 (Version 2)
Quarter: 2015Q2

REPORT INFORMATION
  Report Type: Spontaneous
  Country: US (occurrence: US)
  Receive Date: 20150227
  Receipt Date: 20150406
  Transmission Date: 20150821
  Serious: Yes (Death, Hospitalization, Other)
  Sender: FDA-Public Use
  Company Number: US-AMGEN-USASP2015017876

PATIENT
  Age: 67 Year
  Sex: Male

DRUGS (1)
  1. ENBREL [Suspect]
     Active Substance: ETANERCEPT
     Indication: PSORIATIC ARTHROPATHY
     Dosage: UNK
     Route: 065
     Dates: start: 20041119

REACTIONS (6)
  - Pancreatitis [Unknown]
  - Cholelithiasis [Recovered/Resolved]
  - Death [Fatal]
  - Acute kidney injury [Unknown]
  - Pancreatic pseudocyst [Unknown]
  - Pancreatic cyst rupture [Unknown]

NARRATIVE: CASE EVENT DATE: 20150213
